FAERS Safety Report 18860561 (Version 2)
Quarter: 2021Q1

REPORT INFORMATION
  Report Type: Report from Study
  Country: DE (occurrence: DE)
  Receive Date: 20210208
  Receipt Date: 20210210
  Transmission Date: 20210420
  Serious: Yes (Life-Threatening, Other)
  Sender: FDA-Public Use
  Company Number: DE-PFIZER INC-2021109328

PATIENT
  Age: 53 Year
  Sex: Female

DRUGS (4)
  1. ESTRIOL [Suspect]
     Active Substance: ESTRIOL
     Indication: HORMONE REPLACEMENT THERAPY
     Dosage: 1 MG, 1.5 YEARS
     Route: 048
  2. ESTRADIOL. [Suspect]
     Active Substance: ESTRADIOL
     Indication: HORMONE REPLACEMENT THERAPY
     Dosage: 2 MG, DAILY
  3. KLIOGEST [Suspect]
     Active Substance: ESTROGENS
     Dosage: UNK, DAILY
     Route: 048
  4. NORETHINDRONE ACETATE. [Suspect]
     Active Substance: NORETHINDRONE ACETATE
     Indication: HORMONE REPLACEMENT THERAPY
     Dosage: 1 MG FOR 10 DAYS  (11?20)
     Route: 048

REACTIONS (1)
  - Endometrial cancer [Unknown]
